FAERS Safety Report 7476492-0 (Version None)
Quarter: 2011Q2

REPORT INFORMATION
  Report Type: 
  Country: None (occurrence: None)
  Receive Date: 20110510
  Receipt Date: 20110510
  Transmission Date: 20111010
  Serious: Yes (Other)
  Sender: FDA-Public Use
  Company Number: None

PATIENT
  Age: 50 Year
  Sex: Female
  Weight: 63.5036 kg

DRUGS (2)
  1. CIMETIDINE [Suspect]
     Indication: ALOPECIA
     Dosage: 400 MG 4 TIMES DAILY OTHER
     Route: 050
     Dates: start: 20110421, end: 20110505
  2. THYROID TAB [Concomitant]

REACTIONS (7)
  - NASAL CONGESTION [None]
  - ALOPECIA [None]
  - EYE PRURITUS [None]
  - OCULAR HYPERAEMIA [None]
  - PYREXIA [None]
  - RHINORRHOEA [None]
  - NASOPHARYNGITIS [None]
